FAERS Safety Report 14855017 (Version 1)
Quarter: 2018Q2

REPORT INFORMATION
  Report Type: Spontaneous
  Country: US (occurrence: US)
  Receive Date: 20180507
  Receipt Date: 20180507
  Transmission Date: 20180711
  Serious: No
  Sender: FDA-Public Use
  Company Number: US-ROCHE-1931833

PATIENT
  Sex: Female

DRUGS (12)
  1. PREDNISONE. [Concomitant]
     Active Substance: PREDNISONE
     Route: 065
  2. AMOXICILLIN. [Concomitant]
     Active Substance: AMOXICILLIN
     Route: 065
  3. MEGESTROL ACETATE. [Concomitant]
     Active Substance: MEGESTROL ACETATE
     Route: 065
  4. PROVENTIL [Concomitant]
     Active Substance: ALBUTEROL
     Route: 065
  5. DOXYCYCLINE HCL [Concomitant]
     Active Substance: DOXYCYCLINE HYDROCHLORIDE
     Route: 065
  6. SULFAMETHOXAZOLE [Concomitant]
     Active Substance: SULFAMETHOXAZOLE
     Route: 065
  7. NAPROXEN SODIUM. [Concomitant]
     Active Substance: NAPROXEN SODIUM
     Route: 065
  8. HYDROCODONE BITARTRATE AND ACETAMINOPHEN [Concomitant]
     Active Substance: ACETAMINOPHEN\HYDROCODONE BITARTRATE
     Dosage: 7.5-325
     Route: 065
  9. IPRATROPIUM [Concomitant]
     Active Substance: IPRATROPIUM
     Dosage: 0.02% INH
     Route: 065
  10. ESBRIET [Suspect]
     Active Substance: PIRFENIDONE
     Indication: IDIOPATHIC PULMONARY FIBROSIS
     Dosage: TAKE 3 CAPSULES BY MOUTH THREE TIMES A DAY
     Route: 048
  11. ADVIL [Concomitant]
     Active Substance: IBUPROFEN
     Route: 065
  12. LEVOFLOXACIN. [Concomitant]
     Active Substance: LEVOFLOXACIN
     Route: 065

REACTIONS (1)
  - Liver function test increased [Unknown]
